FAERS Safety Report 5513388-5 (Version None)
Quarter: 2007Q4

REPORT INFORMATION
  Report Type: 
  Country: None (occurrence: None)
  Receive Date: 20071112
  Receipt Date: 20071031
  Transmission Date: 20080405
  Serious: Yes (Other)
  Sender: FDA-Public Use
  Company Number: US-PFIZER INC-2006141387

PATIENT
  Sex: Female
  Weight: 55.8 kg

DRUGS (13)
  1. LIPITOR [Suspect]
     Indication: BLOOD CHOLESTEROL INCREASED
  2. CHANTIX [Suspect]
     Indication: SMOKING CESSATION THERAPY
  3. INSULIN [Concomitant]
  4. PLAVIX [Concomitant]
  5. HYZAAR [Concomitant]
  6. GLYBURIDE [Concomitant]
  7. AVANDIA [Concomitant]
  8. LASIX [Concomitant]
  9. POTASSIUM CHLORIDE [Concomitant]
  10. AMITRIPTYLINE HCL [Concomitant]
  11. CALCIUM [Concomitant]
  12. BACTRIM [Concomitant]
  13. INSULIN GLULISINE [Concomitant]

REACTIONS (14)
  - ABDOMINAL DISTENSION [None]
  - ADRENAL DISORDER [None]
  - ANAEMIA [None]
  - BUNION OPERATION [None]
  - CATARACT OPERATION [None]
  - CHOLECYSTECTOMY [None]
  - ERUCTATION [None]
  - JOINT SWELLING [None]
  - KNEE ARTHROPLASTY [None]
  - NAUSEA [None]
  - PAIN IN EXTREMITY [None]
  - RENAL DISORDER [None]
  - URINARY RETENTION [None]
  - VOMITING [None]
